FAERS Safety Report 19187074 (Version 5)
Quarter: 2021Q3

REPORT INFORMATION
  Report Type: Report from Study
  Country: None (occurrence: IL)
  Receive Date: 20210428
  Receipt Date: 20210905
  Transmission Date: 20211014
  Serious: Yes (Hospitalization)
  Sender: FDA-Public Use
  Company Number: IL-ABBVIE-19K-082-3189238-00

PATIENT
  Sex: Male

DRUGS (3)
  1. DUODOPA [Suspect]
     Active Substance: CARBIDOPA\LEVODOPA
     Dosage: CURRENT MD? 6.0 ML, CD? 1.2 ML/ HOUR, CURRENT EXTRA DOSE? 1.0 ML
     Route: 050
  2. DUODOPA [Suspect]
     Active Substance: CARBIDOPA\LEVODOPA
     Indication: PARKINSON^S DISEASE
     Dosage: CURRENT MD? 5.5 ML, CONTINUOUS RATE? 0.9 ML/ HOUR, CURRENT ED? 0.8 ML;
     Route: 050
     Dates: start: 20190623, end: 2019
  3. DUODOPA [Suspect]
     Active Substance: CARBIDOPA\LEVODOPA
     Dosage: CURRENT MD? 6.0 ML, CD? 1.2 ML/ HOUR, CURRENT EXTRA DOSE? 1.0 ML
     Route: 050
     Dates: start: 2019

REACTIONS (18)
  - Post procedural infection [Recovering/Resolving]
  - Nocturia [Not Recovered/Not Resolved]
  - Gait disturbance [Unknown]
  - Middle insomnia [Unknown]
  - Disturbance in attention [Not Recovered/Not Resolved]
  - Asthenia [Not Recovered/Not Resolved]
  - Stoma site pain [Not Recovered/Not Resolved]
  - Tremor [Not Recovered/Not Resolved]
  - Freezing phenomenon [Unknown]
  - On and off phenomenon [Recovered/Resolved]
  - Dyskinesia [Recovering/Resolving]
  - Infection [Not Recovered/Not Resolved]
  - Dyskinesia [Not Recovered/Not Resolved]
  - Memory impairment [Not Recovered/Not Resolved]
  - Inguinal hernia [Recovering/Resolving]
  - Musculoskeletal stiffness [Unknown]
  - Weight increased [Recovering/Resolving]
  - Pruritus [Recovering/Resolving]

NARRATIVE: CASE EVENT DATE: 2019
